FAERS Safety Report 24441164 (Version 1)
Quarter: 2024Q4

REPORT INFORMATION
  Report Type: Spontaneous
  Country: IT (occurrence: IT)
  Receive Date: 20241016
  Receipt Date: 20241016
  Transmission Date: 20250114
  Serious: Yes (Other)
  Sender: ORGANON
  Company Number: IT-ORGANON-O2410ITA001189

PATIENT
  Sex: Female

DRUGS (1)
  1. NUVARING [Suspect]
     Active Substance: ETHINYL ESTRADIOL\ETONOGESTREL
     Dosage: 1 RING (0.120 MG/0.015 MG) EVERY 24 HOURS
     Route: 067

REACTIONS (2)
  - Pregnancy with contraceptive device [Unknown]
  - Unintended pregnancy [Unknown]
